FAERS Safety Report 4340427-X (Version None)
Quarter: 2004Q2

REPORT INFORMATION
  Report Type: 
  Country: None (occurrence: None)
  Receive Date: 20040414
  Receipt Date: 20040405
  Transmission Date: 20050107
  Serious: Yes (Death, Other)
  Sender: FDA-Public Use
  Company Number: 2003-10-2064

PATIENT
  Age: 68 Year
  Sex: Female
  Weight: 68.0396 kg

DRUGS (2)
  1. TEMODAR [Suspect]
     Indication: GLIOBLASTOMA
     Dosage: 140 MG QD ORAL
     Route: 048
     Dates: start: 20031007, end: 20031101
  2. CHEMOTHERAPY REGIMENS [Suspect]
     Indication: GLIOBLASTOMA
     Dates: end: 20031101

REACTIONS (7)
  - ANOREXIA [None]
  - FATIGUE [None]
  - GLIOBLASTOMA [None]
  - MALIGNANT NEOPLASM PROGRESSION [None]
  - MEDICATION ERROR [None]
  - PHARYNGOLARYNGEAL PAIN [None]
  - RENAL FAILURE [None]
